FAERS Safety Report 6534979-9 (Version None)
Quarter: 2010Q1

REPORT INFORMATION
  Report Type: 
  Country: None (occurrence: None)
  Receive Date: 20100112
  Receipt Date: 20100107
  Transmission Date: 20100710
  Serious: Yes (Other)
  Sender: FDA-Public Use
  Company Number: US-GENENTECH-286200

PATIENT
  Sex: Female

DRUGS (9)
  1. XOLAIR [Suspect]
     Indication: ASTHMA
     Dosage: 300 MG, Q4W
     Route: 058
     Dates: start: 20090630, end: 20090630
  2. IMMUNOTHERAPY (ALLERGEN UNKNOWN) [Concomitant]
     Indication: DRUG USE FOR UNKNOWN INDICATION
  3. FEXOFENADINE [Concomitant]
     Indication: DRUG USE FOR UNKNOWN INDICATION
     Dosage: 180 MG, QD
     Route: 048
  4. PROTONIX [Concomitant]
     Indication: GASTROOESOPHAGEAL REFLUX DISEASE
     Dosage: 20 MG, BID
     Route: 048
  5. SINGULAIR [Concomitant]
     Indication: ASTHMA
     Dosage: 10 MG, QHS
     Route: 048
  6. SPIRONOLACTONE [Concomitant]
     Indication: ASTHMA
     Dosage: 25 MG, QHS
     Route: 048
  7. XOPENEX [Concomitant]
     Indication: DRUG USE FOR UNKNOWN INDICATION
     Dosage: UNK
  8. ADVAIR DISKUS 100/50 [Concomitant]
     Indication: ASTHMA
     Dosage: UNK
  9. ATIVAN [Concomitant]
     Indication: DRUG USE FOR UNKNOWN INDICATION
     Dosage: 0.5 MG, PRN

REACTIONS (4)
  - ANXIETY [None]
  - ARTHRALGIA [None]
  - HEADACHE [None]
  - PARAESTHESIA ORAL [None]
